FAERS Safety Report 17668987 (Version 1)
Quarter: 2020Q2

REPORT INFORMATION
  Report Type: Report from Study
  Country: US (occurrence: US)
  Receive Date: 20200415
  Receipt Date: 20200415
  Transmission Date: 20200713
  Serious: No
  Sender: FDA-Public Use
  Company Number: NVSC2020US100238

PATIENT
  Age: 69 Year

DRUGS (2)
  1. TAFINLAR [Suspect]
     Active Substance: DABRAFENIB MESYLATE
     Indication: FLATULENCE
  2. TAFINLAR [Suspect]
     Active Substance: DABRAFENIB MESYLATE
     Indication: ABDOMINAL PAIN UPPER
     Dosage: 75 MG, BID
     Route: 048

REACTIONS (3)
  - Product use in unapproved indication [Unknown]
  - Abdominal pain upper [Unknown]
  - Flatulence [Unknown]
